FAERS Safety Report 18383676 (Version 2)
Quarter: 2020Q4

REPORT INFORMATION
  Report Type: Spontaneous
  Country: NL (occurrence: NL)
  Receive Date: 20201014
  Receipt Date: 20201016
  Transmission Date: 20210114
  Serious: Yes (Other)
  Sender: FDA-Public Use
  Company Number: NL-PFIZER INC-2020392082

PATIENT
  Sex: Female

DRUGS (23)
  1. ERIBULIN [Suspect]
     Active Substance: ERIBULIN
     Indication: DISEASE PROGRESSION
     Dosage: UNK
     Route: 065
     Dates: start: 201705, end: 201807
  2. OXYCODONE [Suspect]
     Active Substance: OXYCODONE
     Dosage: 10 MG, 2X/DAY
     Route: 048
  3. CAPECITABINE. [Suspect]
     Active Substance: CAPECITABINE
     Indication: DISEASE PROGRESSION
     Dosage: UNK
     Route: 065
     Dates: start: 201201
  4. TAMOXIFEN [Suspect]
     Active Substance: TAMOXIFEN
     Indication: BREAST CANCER
     Dosage: UNK
     Route: 065
     Dates: start: 200110
  5. TEGRETOL [Suspect]
     Active Substance: CARBAMAZEPINE
     Indication: EPILEPSY
     Dosage: UNK
     Route: 065
     Dates: start: 1987, end: 201408
  6. EXEMESTANE. [Suspect]
     Active Substance: EXEMESTANE
     Dosage: 25 MG, 1X/DAY
     Route: 065
     Dates: start: 20130515
  7. FEMARA [Suspect]
     Active Substance: LETROZOLE
     Indication: METASTASES TO LIVER
  8. KEPPRA [Concomitant]
     Active Substance: LEVETIRACETAM
     Indication: EPILEPSY
     Dosage: UNK
     Route: 065
     Dates: start: 201408
  9. CYCLOPHOSPHAMIDE. [Suspect]
     Active Substance: CYCLOPHOSPHAMIDE
     Indication: BREAST CANCER
     Dosage: UNK
     Route: 065
     Dates: start: 200110
  10. MEGESTROL [Concomitant]
     Active Substance: MEGESTROL
     Dosage: 160 MG, 1X/DAY
     Route: 048
  11. FULVESTRANT. [Suspect]
     Active Substance: FULVESTRANT
     Indication: DISEASE PROGRESSION
     Dosage: UNK
     Route: 065
     Dates: start: 20191023, end: 202004
  12. ZOMETA [Suspect]
     Active Substance: ZOLEDRONIC ACID
     Indication: METASTASES TO LIVER
     Dosage: UNK UNK, CYCLIC (ONCE EVERY 4 WEEKS)
     Route: 065
     Dates: start: 201111
  13. PACLITAXEL. [Suspect]
     Active Substance: PACLITAXEL
     Dosage: UNK UNK, WEEKLY
     Route: 065
     Dates: start: 201401, end: 201412
  14. LEVETIRACETAM. [Suspect]
     Active Substance: LEVETIRACETAM
     Dosage: UNK
     Route: 065
  15. EVEROLIMUS. [Suspect]
     Active Substance: EVEROLIMUS
     Dosage: 5 MG, 1X/DAY
     Route: 065
     Dates: start: 20130515, end: 201311
  16. ZOMETA [Suspect]
     Active Substance: ZOLEDRONIC ACID
     Indication: METASTASES TO BONE
  17. MEGACE [Concomitant]
     Active Substance: MEGESTROL ACETATE
     Dosage: UNK
     Route: 065
  18. PACLITAXEL. [Suspect]
     Active Substance: PACLITAXEL
     Indication: DISEASE PROGRESSION
     Dosage: UNK UNK, WEEKLY
     Route: 065
     Dates: start: 201301
  19. EVEROLIMUS. [Suspect]
     Active Substance: EVEROLIMUS
     Dosage: 10 MG
     Route: 065
     Dates: start: 201311
  20. DEXTRAN 70 [Concomitant]
     Active Substance: DEXTRAN 70
     Dosage: 15 ML (VIAL), DRIP VV 2DD IN BOTH EYES WHEN NECESSARY
     Route: 065
  21. PACLITAXEL. [Suspect]
     Active Substance: PACLITAXEL
     Dosage: UNK UNK, WEEKLY
     Route: 065
     Dates: start: 201505
  22. LEVETIRACETAM. [Suspect]
     Active Substance: LEVETIRACETAM
     Dosage: 500 MG, 2X/DAY
     Route: 048
  23. FEMARA [Suspect]
     Active Substance: LETROZOLE
     Indication: METASTASES TO BONE
     Dosage: 2.5 MG, 1X/DAY
     Route: 065
     Dates: start: 201111

REACTIONS (12)
  - Central nervous system lesion [Unknown]
  - Hepatitis [Unknown]
  - Endometriosis [Unknown]
  - Papillary thyroid cancer [Unknown]
  - Pneumonia [Unknown]
  - Neoplasm progression [Unknown]
  - Neutropenia [Unknown]
  - Palmar-plantar erythrodysaesthesia syndrome [Unknown]
  - Thoracic vertebral fracture [Unknown]
  - Radiculopathy [Unknown]
  - Second primary malignancy [Unknown]
  - Epilepsy [Unknown]

NARRATIVE: CASE EVENT DATE: 1995
